FAERS Safety Report 17307998 (Version 3)
Quarter: 2021Q1

REPORT INFORMATION
  Report Type: Other
  Country: CA (occurrence: CA)
  Receive Date: 20200123
  Receipt Date: 20210126
  Transmission Date: 20210419
  Serious: Yes (Hospitalization, Other)
  Sender: FDA-Public Use
  Company Number: CA-ROCHE-2058070

PATIENT
  Age: 61 Year
  Sex: Female

DRUGS (41)
  1. RITUXAN [Suspect]
     Active Substance: RITUXIMAB
     Indication: GRANULOMATOSIS WITH POLYANGIITIS
     Route: 042
     Dates: start: 20170208
  2. PREDNISONE. [Suspect]
     Active Substance: PREDNISONE
     Indication: VASCULITIS
     Route: 048
     Dates: start: 20180904
  3. PANTOPRAZOLE [Concomitant]
     Active Substance: PANTOPRAZOLE
  4. SYNTHROID [Concomitant]
     Active Substance: LEVOTHYROXINE SODIUM
     Route: 048
  5. LINAGLIPTIN [Concomitant]
     Active Substance: LINAGLIPTIN
     Route: 048
  6. DIPHENHYDRAMINE. [Concomitant]
     Active Substance: DIPHENHYDRAMINE
     Indication: PREMEDICATION
     Route: 048
     Dates: start: 20170208
  7. RITUXAN [Suspect]
     Active Substance: RITUXIMAB
     Dosage: ONE TIME, OR SINGLE DOSE INFUSIONS.
     Route: 042
     Dates: start: 20190716
  8. CIPROFLOXACIN. [Concomitant]
     Active Substance: CIPROFLOXACIN
  9. SALBUTAMOL [Concomitant]
     Active Substance: ALBUTEROL
  10. GABAPENTIN. [Concomitant]
     Active Substance: GABAPENTIN
     Route: 048
  11. INSULIN [Concomitant]
     Active Substance: INSULIN NOS
  12. RITUXAN [Suspect]
     Active Substance: RITUXIMAB
     Dosage: SINGLE DOSE INFUSION
     Route: 042
     Dates: start: 20200116, end: 20200713
  13. RITUXAN [Suspect]
     Active Substance: RITUXIMAB
     Route: 042
     Dates: start: 20210119
  14. ASPIRIN. [Concomitant]
     Active Substance: ASPIRIN
     Route: 048
  15. ATROVENT [Concomitant]
     Active Substance: IPRATROPIUM BROMIDE
  16. SULFATRIM [Concomitant]
     Active Substance: SULFAMETHOXAZOLE\TRIMETHOPRIM
     Dosage: ONE TABLET 3 TIMES WEEKLY
  17. IMURAN [Concomitant]
     Active Substance: AZATHIOPRINE
  18. HUMALOG [Concomitant]
     Active Substance: INSULIN LISPRO
     Dosage: 6 UNITS
     Route: 058
  19. ATORVASTATIN [Concomitant]
     Active Substance: ATORVASTATIN
     Route: 048
  20. LANTUS [Concomitant]
     Active Substance: INSULIN GLARGINE
     Dosage: 36 UNITS EVERY EVENING
     Route: 058
  21. METOPROLOL. [Concomitant]
     Active Substance: METOPROLOL
     Route: 048
  22. COVERSYL [Concomitant]
     Active Substance: PERINDOPRIL
  23. LASIX [Concomitant]
     Active Substance: FUROSEMIDE
     Dosage: 3 DAYS A WEEK
     Route: 048
  24. MAGNESIUM OXIDE. [Concomitant]
     Active Substance: MAGNESIUM OXIDE
     Route: 048
  25. METHYLPREDNISOLONE. [Concomitant]
     Active Substance: METHYLPREDNISOLONE
     Indication: PREMEDICATION
     Route: 042
     Dates: start: 20170208
  26. PREDNISONE. [Suspect]
     Active Substance: PREDNISONE
     Indication: GRANULOMATOSIS WITH POLYANGIITIS
  27. AMLODIPINE [Concomitant]
     Active Substance: AMLODIPINE BESYLATE
     Route: 048
  28. SEPTRA DS [Concomitant]
     Active Substance: SULFAMETHOXAZOLE\TRIMETHOPRIM
     Route: 048
  29. RITUXAN [Suspect]
     Active Substance: RITUXIMAB
     Indication: VASCULITIS
     Dosage: PREVIOUS RITUXAN INFUSION: 16/JUL/2019
     Route: 042
     Dates: start: 20180508
  30. RITUXAN [Suspect]
     Active Substance: RITUXIMAB
     Dosage: SINGLE DOSE
     Route: 042
     Dates: start: 20180520
  31. GLICLAZIDE [Concomitant]
     Active Substance: GLICLAZIDE
  32. HYDROMORPHONE [Concomitant]
     Active Substance: HYDROMORPHONE
  33. METRONIDAZOLE. [Concomitant]
     Active Substance: METRONIDAZOLE
  34. AZITHROMYCIN ANHYDROUS. [Concomitant]
     Active Substance: AZITHROMYCIN ANHYDROUS
  35. LASIX [Concomitant]
     Active Substance: FUROSEMIDE
     Dosage: 4 DAYS A WEEK
     Route: 048
  36. DILAUDID [Concomitant]
     Active Substance: HYDROMORPHONE HYDROCHLORIDE
  37. PANTOPRAZOLE [Concomitant]
     Active Substance: PANTOPRAZOLE
     Route: 048
  38. CALCIUM CARBONATE. [Concomitant]
     Active Substance: CALCIUM CARBONATE
     Route: 048
  39. ACETAMINOPHEN. [Concomitant]
     Active Substance: ACETAMINOPHEN
     Indication: PREMEDICATION
     Route: 048
     Dates: start: 20170208
  40. FUROSEMIDE. [Concomitant]
     Active Substance: FUROSEMIDE
  41. VENTOLIN [Concomitant]
     Active Substance: ALBUTEROL SULFATE

REACTIONS (34)
  - Musculoskeletal stiffness [Unknown]
  - Blood albumin decreased [Not Recovered/Not Resolved]
  - Mean cell haemoglobin concentration decreased [Unknown]
  - Neutrophil count increased [Unknown]
  - Red cell distribution width increased [Unknown]
  - Protein total increased [Unknown]
  - Granulomatosis with polyangiitis [Not Recovered/Not Resolved]
  - Hypoglycaemia [Recovering/Resolving]
  - Blood glucose increased [Unknown]
  - Arthralgia [Unknown]
  - Contusion [Unknown]
  - White blood cell count increased [Unknown]
  - Blood creatinine increased [Unknown]
  - Vitreous detachment [Unknown]
  - Off label use [Unknown]
  - Proteinuria [Not Recovered/Not Resolved]
  - Red blood cell count increased [Unknown]
  - Intentional product use issue [Unknown]
  - Blood pressure diastolic abnormal [Unknown]
  - Acute kidney injury [Recovering/Resolving]
  - Episcleritis [Unknown]
  - Contusion [Not Recovered/Not Resolved]
  - Cushingoid [Unknown]
  - Blood osmolarity decreased [Unknown]
  - Eosinophil count increased [Unknown]
  - Vasculitis [Unknown]
  - Dehydration [Unknown]
  - Oedema [Unknown]
  - Blood pressure systolic increased [Unknown]
  - Mean cell volume decreased [Unknown]
  - Renal impairment [Unknown]
  - Weight increased [Unknown]
  - Dyspnoea [Not Recovered/Not Resolved]
  - Monocyte count increased [Unknown]

NARRATIVE: CASE EVENT DATE: 201801
